FAERS Safety Report 6881341-5 (Version None)
Quarter: 2010Q2

REPORT INFORMATION
  Report Type: 
  Country: None (occurrence: None)
  Receive Date: 20100630
  Receipt Date: 20090427
  Transmission Date: 20101027
  Serious: No
  Sender: FDA-Public Use
  Company Number: 2009-01086

PATIENT
  Sex: Male
  Weight: 85.7298 kg

DRUGS (6)
  1. ZICAM COLD REMEDY GEL SWABS [Suspect]
     Indication: NASOPHARYNGITIS
     Dosage: QID X 1 WEEK - 3 YEARS
     Dates: start: 20090101
  2. ZICAM EXTREME CONGESTION RELIEF [Suspect]
     Indication: NASOPHARYNGITIS
     Dosage: QID X 1 WEEK - 3 YEARS
     Dates: start: 20090101
  3. ZICAM ALLERGY RELIEF NASAL GBEL [Suspect]
     Indication: NASOPHARYNGITIS
     Dosage: QID/1 WEEK
     Dates: start: 20090101
  4. NEXIUM [Concomitant]
  5. CELEBREX [Concomitant]
  6. TENORMIN [Concomitant]

REACTIONS (2)
  - AGEUSIA [None]
  - ANOSMIA [None]
